FAERS Safety Report 15977001 (Version 1)
Quarter: 2019Q1

REPORT INFORMATION
  Report Type: Spontaneous
  Country: US (occurrence: US)
  Receive Date: 20190218
  Receipt Date: 20190218
  Transmission Date: 20190418
  Serious: Yes (Other)
  Sender: FDA-Public Use
  Company Number: US-009507513-1901USA011070

PATIENT
  Age: 86 Year
  Sex: Male

DRUGS (7)
  1. PROVENTIL [Suspect]
     Active Substance: ALBUTEROL
     Indication: ASTHMA
     Dosage: 2 INHALATIONS/AS NEEDED
     Route: 055
     Dates: start: 1999
  2. AVODART [Concomitant]
     Active Substance: DUTASTERIDE
  3. SYNTHROID [Concomitant]
     Active Substance: LEVOTHYROXINE SODIUM
  4. PROVENTIL [Suspect]
     Active Substance: ALBUTEROL
     Dosage: 2 INHALATIONS/AS NEEDED
     Route: 055
     Dates: start: 1999
  5. ADVAIR HFA [Concomitant]
     Active Substance: FLUTICASONE PROPIONATE\SALMETEROL XINAFOATE
  6. METOPROLOL. [Concomitant]
     Active Substance: METOPROLOL
  7. TERAZOSIN [Concomitant]
     Active Substance: TERAZOSIN\TERAZOSIN HYDROCHLORIDE

REACTIONS (5)
  - Product dose omission [Unknown]
  - Drug ineffective [Unknown]
  - Lower respiratory tract infection [Recovering/Resolving]
  - Product quality issue [Unknown]
  - Inappropriate schedule of product administration [Unknown]

NARRATIVE: CASE EVENT DATE: 201901
